FAERS Safety Report 9278154 (Version 2)
Quarter: 2013Q2

REPORT INFORMATION
  Report Type: Spontaneous
  Country: IT (occurrence: IT)
  Receive Date: 20130508
  Receipt Date: 20130521
  Transmission Date: 20140414
  Serious: Yes (Hospitalization)
  Sender: FDA-Public Use
  Company Number: IT-BRISTOL-MYERS SQUIBB COMPANY-18848499

PATIENT
  Age: 66 Year
  Sex: Female

DRUGS (10)
  1. COUMADIN TABS 5 MG [Suspect]
     Indication: CARDIAC VALVE PROSTHESIS USER
     Dosage: TRANSFUSION.
     Route: 048
     Dates: start: 20090717, end: 20130429
  2. DIGOXIN [Concomitant]
  3. FUROSEMIDE [Concomitant]
  4. ENALAPRIL [Concomitant]
  5. LORAZEPAM [Concomitant]
  6. LEVOTHYROXINE [Concomitant]
  7. METFORMIN [Concomitant]
  8. OMEPRAZOLE [Concomitant]
  9. ALLOPURINOL [Concomitant]
  10. SIMVASTATIN [Concomitant]

REACTIONS (1)
  - Anaemia [Recovered/Resolved]
